FAERS Safety Report 17847570 (Version 1)
Quarter: 2020Q2

REPORT INFORMATION
  Report Type: Spontaneous
  Country: FR (occurrence: FR)
  Receive Date: 20200601
  Receipt Date: 20200601
  Transmission Date: 20200714
  Serious: Yes (Hospitalization)
  Sender: FDA-Public Use
  Company Number: FR-BAXTER-2020BAX010905

PATIENT
  Age: 52 Year
  Sex: Female
  Weight: 55 kg

DRUGS (49)
  1. LAROXYL [Concomitant]
     Active Substance: AMITRIPTYLINE HYDROCHLORIDE
     Indication: PRODUCT USED FOR UNKNOWN INDICATION
     Route: 048
     Dates: end: 2016
  2. CALCIUM FOLINATE [Concomitant]
     Active Substance: LEUCOVORIN CALCIUM
     Indication: PRODUCT USED FOR UNKNOWN INDICATION
     Dosage: TOTAL ADMINISTERED DOSE: 1,200 MG
     Route: 042
     Dates: start: 2016, end: 20161014
  3. NIVESTIM [Concomitant]
     Active Substance: FILGRASTIM
     Indication: NEUTROPENIA
     Dosage: NOT COMMUNICATED
     Route: 042
     Dates: start: 2016, end: 2016
  4. HYDROXYZINE HYDROCHLORIDE. [Concomitant]
     Active Substance: HYDROXYZINE HYDROCHLORIDE
     Indication: PRODUCT USED FOR UNKNOWN INDICATION
     Route: 042
     Dates: start: 2016, end: 2016
  5. TIENAM [Concomitant]
     Active Substance: CILASTATIN SODIUM\IMIPENEM
     Indication: INFECTION
     Dosage: NOT COMMUNICATED
     Route: 042
     Dates: start: 201610
  6. TIORFAN [Concomitant]
     Active Substance: RACECADOTRIL
     Indication: DIARRHOEA
     Dosage: NOT COMMUNICATED
     Route: 048
     Dates: start: 2016, end: 2016
  7. IMOVANE [Concomitant]
     Active Substance: ZOPICLONE
     Indication: INSOMNIA
     Dosage: SCORED FILM-COATED TABLET
     Route: 048
  8. INNOHEP [Concomitant]
     Active Substance: TINZAPARIN SODIUM
     Indication: VENOUS THROMBOSIS
     Dosage: 10,000 IU/D
     Route: 058
  9. VINCRISTINE SULFATE. [Concomitant]
     Active Substance: VINCRISTINE SULFATE
     Indication: B-CELL LYMPHOMA
     Dosage: TOTAL ADMINISTERED DOSE: 4 MG
     Route: 042
     Dates: start: 2016, end: 20161011
  10. DIFFU-K [Concomitant]
     Active Substance: POTASSIUM CHLORIDE
     Indication: HYPOKALAEMIA
     Route: 048
     Dates: start: 2016
  11. METHOTREXATE. [Suspect]
     Active Substance: METHOTREXATE
     Indication: B-CELL LYMPHOMA
     Dosage: TOTAL ADMINISTERED DOSE: 11,580 MG
     Route: 042
     Dates: start: 2016, end: 20161021
  12. KAYEXALATE [Suspect]
     Active Substance: SODIUM POLYSTYRENE SULFONATE
     Indication: HYPERKALAEMIA
     Dosage: NOT COMMUNICATED, POWDER FOR ORAL AND RECTAL SUSPENSION
     Route: 048
     Dates: start: 2016, end: 2016
  13. VITAMINE A [Suspect]
     Active Substance: RETINOL
     Indication: KERATITIS
     Route: 048
  14. BISOCE [Concomitant]
     Active Substance: BISOPROLOL
     Indication: PRODUCT USED FOR UNKNOWN INDICATION
     Dosage: SCORED FILM-COATED TABLET
     Route: 048
     Dates: start: 2016, end: 2016
  15. SPIRONOLACTONE. [Concomitant]
     Active Substance: SPIRONOLACTONE
     Indication: PRODUCT USED FOR UNKNOWN INDICATION
     Route: 048
     Dates: start: 2016, end: 2016
  16. LASILIX FAIBLE [Suspect]
     Active Substance: FUROSEMIDE
     Indication: PRODUCT USED FOR UNKNOWN INDICATION
     Dosage: TABLET
     Route: 048
     Dates: start: 2016, end: 2016
  17. METHYLPREDNISOLONE. [Concomitant]
     Active Substance: METHYLPREDNISOLONE
     Indication: PRODUCT USED FOR UNKNOWN INDICATION
     Dosage: TOTAL ADMINISTERED DOSE: 1,380 MG
     Route: 042
     Dates: start: 2016, end: 20161016
  18. PANTOPRAZOLE [Concomitant]
     Active Substance: PANTOPRAZOLE
     Indication: GASTRIC ULCER
     Route: 042
  19. DEPOCYTE [Concomitant]
     Active Substance: CYTARABINE
     Indication: B-CELL LYMPHOMA
     Dosage: SUSPENSION INJECTABLE
     Route: 042
     Dates: start: 20160912, end: 20160912
  20. MIDAZOLAM. [Concomitant]
     Active Substance: MIDAZOLAM
     Indication: SEDATION
     Route: 042
     Dates: start: 2016, end: 2016
  21. TRANXENE [Concomitant]
     Active Substance: CLORAZEPATE DIPOTASSIUM
     Indication: ANXIETY
     Dosage: NOT COMMUNICATED
     Route: 048
     Dates: start: 2016, end: 2016
  22. ECONAZOLE. [Concomitant]
     Active Substance: ECONAZOLE NITRATE
     Indication: INTERTRIGO
     Route: 067
     Dates: start: 2016, end: 2016
  23. VANCOMYCIN [Concomitant]
     Active Substance: VANCOMYCIN
     Indication: INFECTION
     Route: 042
     Dates: start: 2016, end: 2016
  24. TITANOREINE [Concomitant]
     Active Substance: CARRAGEENAN\TITANIUM\ZINC
     Indication: HAEMORRHOIDS
     Dosage: NOT COMMUNICATED
     Route: 003
     Dates: start: 2016, end: 2016
  25. MEROPENEM ANHYDROUS [Concomitant]
     Active Substance: MEROPENEM ANHYDROUS
     Indication: PNEUMONIA
     Route: 042
     Dates: start: 2016, end: 2016
  26. HALDOL [Concomitant]
     Active Substance: HALOPERIDOL
     Indication: HALLUCINATION
     Dosage: NOT SPECIFIED
     Route: 048
  27. MABTHERA [Concomitant]
     Active Substance: RITUXIMAB
     Indication: B-CELL LYMPHOMA
     Dosage: TOTAL ADMINISTERED DOSE: 1,435 MG
     Route: 042
     Dates: start: 2016, end: 20161010
  28. PARACETAMOL [Suspect]
     Active Substance: ACETAMINOPHEN
     Indication: PAIN
     Dosage: NOT COMMUNICATED
     Route: 048
     Dates: start: 2016, end: 2016
  29. ETOPOSIDE. [Concomitant]
     Active Substance: ETOPOSIDE
     Indication: B-CELL LYMPHOMA
     Dosage: TOTAL ADMINISTERED DOSE: 1,480 MG
     Route: 042
     Dates: start: 2016, end: 20161120
  30. SMECTA [Concomitant]
     Active Substance: MONTMORILLONITE
     Indication: DIARRHOEA
     Dosage: NOT COMMUNICATED
     Route: 048
     Dates: start: 2016, end: 2016
  31. CYMBALTA [Concomitant]
     Active Substance: DULOXETINE HYDROCHLORIDE
     Indication: DEPRESSION
     Dosage: ENTERIC COATED CAPSULE
     Route: 048
  32. OXYNORM [Concomitant]
     Active Substance: OXYCODONE HYDROCHLORIDE
     Indication: PAIN
     Dosage: SOLUTION INJECTABLE
     Route: 042
     Dates: start: 2016
  33. ENDOXAN 1000 MG, POUDRE POUR SOLUTIONINJECTABLE [Suspect]
     Active Substance: CYCLOPHOSPHAMIDE
     Indication: B-CELL LYMPHOMA
     Dosage: TOTAL ADMINISTERED DOSE: 5,775 MG
     Route: 042
     Dates: start: 2016, end: 20161014
  34. CIPROFLOXACIN. [Suspect]
     Active Substance: CIPROFLOXACIN
     Indication: PRODUCT USED FOR UNKNOWN INDICATION
     Route: 042
     Dates: start: 2016, end: 2016
  35. DIPEPTIVEN [Concomitant]
     Active Substance: ALANYL GLUTAMINE
     Indication: AMINO ACID LEVEL DECREASED
     Dosage: SOLUTION TO DILUTE FOR INFUSION
     Route: 042
     Dates: end: 2016
  36. VFEND [Concomitant]
     Active Substance: VORICONAZOLE
     Indication: CANDIDA INFECTION
     Dosage: NOT COMMUNICATED
     Route: 042
     Dates: start: 2016, end: 2016
  37. HYDROCORTANCYL [Concomitant]
     Active Substance: PREDNISONE
     Indication: PRODUCT USED FOR UNKNOWN INDICATION
     Dosage: TOTAL ADMINISTERED DOSE: 10 MG
     Route: 042
     Dates: start: 2016, end: 20161021
  38. TOPALGIC [Concomitant]
     Indication: PAIN
     Dosage: NOT COMMUNICATED
     Route: 048
     Dates: start: 2016, end: 2016
  39. ALPRAZOLAM. [Concomitant]
     Active Substance: ALPRAZOLAM
     Indication: ANXIETY
     Route: 048
  40. CYTARABINE. [Concomitant]
     Active Substance: CYTARABINE
     Indication: B-CELL LYMPHOMA
     Dosage: TOTAL ADMINISTERED DOSE: 15,242.5 MG
     Route: 042
     Dates: start: 2016, end: 20161120
  41. DEBRIDAT [Concomitant]
     Active Substance: TRIMEBUTINE MALEATE
     Indication: PAIN
     Dosage: 50 MG/5 ML, SOLUTION FOR INJECTION IN VIAL
     Route: 048
     Dates: start: 2016, end: 2016
  42. NEFOPAM HYDROCHLORIDE [Concomitant]
     Active Substance: NEFOPAM HYDROCHLORIDE
     Indication: PAIN
     Dosage: IF PAIN
     Route: 048
     Dates: start: 2016
  43. MOVICOL [Concomitant]
     Active Substance: POLYETHYLENE GLYCOL 3350\POTASSIUM CHLORIDE\SODIUM BICARBONATE\SODIUM CHLORIDE
     Indication: CONSTIPATION
     Dosage: NOT COMMUNICATED
     Route: 048
     Dates: start: 2016, end: 2016
  44. AMIKACIN. [Concomitant]
     Active Substance: AMIKACIN
     Indication: INFECTION
     Dosage: NOT SPECIFIED
     Route: 042
     Dates: start: 2016, end: 2016
  45. MODAMIDE [Concomitant]
     Active Substance: AMILORIDE HYDROCHLORIDE
     Indication: PRODUCT USED FOR UNKNOWN INDICATION
     Dosage: NOT COMMUNICATED
     Route: 048
     Dates: start: 2016, end: 2016
  46. PRIMPERAN [Concomitant]
     Active Substance: METOCLOPRAMIDE HYDROCHLORIDE
     Indication: NAUSEA
     Dosage: IF NEEDED, SCORED TABLET
     Route: 048
     Dates: start: 2016
  47. VERSATIS [Concomitant]
     Active Substance: LIDOCAINE
     Indication: PAIN
     Dosage: NOT COMMUNICATED, MEDICATED PLASTER
     Route: 003
     Dates: start: 2016, end: 2016
  48. DOXORUBICIN HYDROCHLORIDE. [Concomitant]
     Active Substance: DOXORUBICIN HYDROCHLORIDE
     Indication: B-CELL LYMPHOMA
     Dosage: TOTAL ADMINISTERED DOSE: 231 MG
     Route: 042
     Dates: start: 2016, end: 20161012
  49. ZOPHREN [Concomitant]
     Active Substance: ONDANSETRON
     Indication: VOMITING
     Dosage: 8 MG/4 ML (1 AMPOULE/24 H)
     Route: 065
     Dates: start: 2016

REACTIONS (1)
  - Granulomatous liver disease [Recovering/Resolving]

NARRATIVE: CASE EVENT DATE: 201612
